FAERS Safety Report 18346361 (Version 2)
Quarter: 2021Q1

REPORT INFORMATION
  Report Type: Spontaneous
  Country: US (occurrence: US)
  Receive Date: 20201005
  Receipt Date: 20210119
  Transmission Date: 20210419
  Serious: No
  Sender: FDA-Public Use
  Company Number: US-PFIZER INC-2016482939

PATIENT
  Age: 59 Year
  Sex: Female

DRUGS (20)
  1. ASPIRIN (E.C.) [Concomitant]
     Active Substance: ASPIRIN
     Dosage: 81 MG, 1X/DAY (1 TAB BY MOUTH DAILY)
     Route: 048
  2. ZOVIRAX [Concomitant]
     Active Substance: ACYCLOVIR
     Dosage: 1000 MG, DAILY (200 MG BY MOUTH 5 (FIVE) TIMES DAILY)
     Route: 048
  3. LYRICA [Suspect]
     Active Substance: PREGABALIN
     Dosage: 75 MG, 3X/DAY (75 TID (THREE TIMES A DAY))
     Dates: start: 20191219, end: 20200118
  4. LYRICA [Suspect]
     Active Substance: PREGABALIN
     Dosage: 75 MG, AS NEEDED (SIG: TAKE 1 CAPSULE (75 MG TOTAL) BY MOUTH 3 (THREE) TIMES DAILY AS NEEDED)
     Route: 048
  5. WELLBUTRIN SR [Concomitant]
     Active Substance: BUPROPION HYDROCHLORIDE
     Dosage: 150 MG, 1X/DAY (TAKE 1 TABLET (150 MG TOTAL) BY MOUTH ONCE DAILY)
     Route: 048
  6. ESTRACE [Concomitant]
     Active Substance: ESTRADIOL
     Dosage: 2 MG, 1X/DAY (TAKE 2 MG BY MOUTH ONCE DAILY)
     Route: 048
  7. B COMPLEX [BIOTIN;CHOLINE BITARTRATE;CYANOCOBALAMIN;FOLIC ACID;INOSITO [Concomitant]
     Dosage: 1 DF, DAILY (TAKE 1 TABLET BY MOUTH DAILY)
     Route: 048
  8. BLACK COHOSH [CIMICIFUGA RACEMOSA] [Concomitant]
     Active Substance: BLACK COHOSH
     Dosage: 80 MG (TAKE 80 MG BY MOUTH)
     Route: 048
  9. VITAMIN D3 [Concomitant]
     Active Substance: CHOLECALCIFEROL
     Dosage: 2000 IU, 1X/DAY (2000 UNIT BY MOUTH ONCE DAILY)
     Route: 048
  10. ADEKS [Concomitant]
     Dosage: 7.5 MG, DAILY (TAKE 1 TABLET BY MOUTH DAILY)
     Route: 048
  11. TOPAMAX [Concomitant]
     Active Substance: TOPIRAMATE
     Dosage: 100 MG, DAILY (TAKE 1 TABLET (100 MG TOTAL) BY MOUTH NIGHTLY)
     Route: 048
  12. WELLBUTRIN SR [Concomitant]
     Active Substance: BUPROPION HYDROCHLORIDE
     Dosage: 100 MG, 1X/DAY (1 TABLET (100MG) BY MOUTH ONCE NIGHTLY)
     Route: 048
  13. FLONASE [Concomitant]
     Active Substance: FLUTICASONE PROPIONATE
     Dosage: UNK, DAILY (1 SPRAY IN EACH NOSTRIL DAILY)
     Route: 045
  14. LAMICTAL [Concomitant]
     Active Substance: LAMOTRIGINE
     Dosage: 200 MG, 2X/DAY (TAKE 1 TABLET (200 MG TOTAL) BY MOUTH 2 (TWO) TIMES DAILY)
     Route: 048
  15. CALCIUM CARBONATE W/VITAMIN D [CALCIUM CARBONATE;COLECALCIFEROL] [Concomitant]
     Active Substance: CALCIUM CARBONATE\CHOLECALCIFEROL
     Dosage: UNK, 1X/DAY (TAKE BY MOUTH ONCE DAILY)
     Route: 048
  16. LYRICA [Suspect]
     Active Substance: PREGABALIN
     Indication: NERVE INJURY
     Dosage: 75 MG, 3X/DAY
     Route: 048
     Dates: start: 20161003, end: 20171003
  17. LYRICA [Suspect]
     Active Substance: PREGABALIN
     Dosage: 75 MG, 3X/DAY (75 TID (THREE TIMES A DAY))
     Dates: start: 20191219, end: 20200616
  18. ZYRTEC [Concomitant]
     Active Substance: CETIRIZINE HYDROCHLORIDE
     Dosage: UNK, 1X/DAY (BY MOUTH ONCE DAILY)
     Route: 048
  19. ESTRACE [Concomitant]
     Active Substance: ESTRADIOL
     Dosage: 1 MG (TAKE 1 TABLET (1 MG TOTAL) BY MOUTH ONCE DAILY)
     Route: 048
  20. LYRICA [Suspect]
     Active Substance: PREGABALIN
     Dosage: 75 MG, 3X/DAY
     Route: 048
     Dates: start: 20161207, end: 20171207

REACTIONS (1)
  - Hypoacusis [Unknown]
